FAERS Safety Report 15450504 (Version 1)
Quarter: 2018Q4

REPORT INFORMATION
  Report Type: Spontaneous
  Country: CZ (occurrence: CZ)
  Receive Date: 20181001
  Receipt Date: 20181001
  Transmission Date: 20190204
  Serious: Yes (Hospitalization, Other)
  Sender: FDA-Public Use
  Company Number: CZ-BRISTOL-MYERS SQUIBB COMPANY-BMS-2018-043797

PATIENT
  Age: 63 Year
  Sex: Female

DRUGS (1)
  1. WARFARIN SODIUM. [Suspect]
     Active Substance: WARFARIN SODIUM
     Indication: ANTICOAGULANT THERAPY
     Dosage: FOR MANY YEARS
     Route: 065

REACTIONS (8)
  - Peripheral ischaemia [Recovering/Resolving]
  - Ecchymosis [Recovering/Resolving]
  - Petechiae [Recovering/Resolving]
  - Blister [Recovering/Resolving]
  - Necrosis [Recovering/Resolving]
  - Erythema [Recovering/Resolving]
  - Pain in extremity [Recovering/Resolving]
  - Oedema [Recovering/Resolving]
